FAERS Safety Report 8553639 (Version 6)
Quarter: 2013Q2

REPORT INFORMATION
  Report Type: Report from Study
  Country: GB (occurrence: GB)
  Receive Date: 20120509
  Receipt Date: 20130521
  Transmission Date: 20140414
  Serious: Yes (Hospitalization)
  Sender: FDA-Public Use
  Company Number: GB-NAPPMUNDI-DEU-2012-0008896

PATIENT
  Age: 47 Year
  Sex: Female
  Weight: 86 kg

DRUGS (11)
  1. OXYCODONE HCL/NALOXONE HCL CR TAB [Suspect]
     Indication: PAIN
     Dosage: 160 MG, DAILY
     Dates: start: 20120404
  2. OXYCODONE HCL CR TABLETS (SIMILAR TO NDA 20-553) [Suspect]
     Indication: BREAKTHROUGH PAIN
     Dosage: 25 MG, DAILY
     Route: 048
     Dates: start: 20120416
  3. DULOXETINE [Concomitant]
     Indication: DEPRESSION
     Dosage: 90 MG, DAILY
     Route: 048
     Dates: start: 20100521
  4. AMITRIPTYLINE [Concomitant]
     Indication: DEPRESSION
     Dosage: 100 MG, DAILY
     Route: 048
     Dates: start: 20120124
  5. OMEPRAZOLE [Concomitant]
     Indication: PROPHYLAXIS AGAINST GASTROINTESTINAL ULCER
     Dosage: 20 MG, DAILY
     Route: 048
     Dates: start: 20100309
  6. CELECOXIB [Concomitant]
     Indication: NECK PAIN
     Dosage: 400 MG, DAILY
     Route: 048
     Dates: start: 20100521
  7. TESTOSTERONE TRANSDERMAL PATCH [Concomitant]
     Indication: MENOPAUSE
     Dosage: 300 MG, DAILY
     Route: 062
     Dates: start: 20110902
  8. FUROSEMIDE [Concomitant]
     Indication: JOINT SWELLING
     Dosage: 20 MG, DAILY
     Route: 048
     Dates: start: 20120306
  9. FUROSEMIDE [Concomitant]
     Dosage: 40 MG, DAILY
     Route: 048
     Dates: start: 20120215
  10. ORUSTAT [Concomitant]
     Indication: OBESITY
     Dosage: 360 MG, DAILY
     Route: 048
     Dates: start: 20120315
  11. ESTRADERM [Concomitant]
     Indication: HORMONE REPLACEMENT THERAPY
     Dosage: 50 MCG, DAILY
     Route: 062
     Dates: start: 20111130

REACTIONS (2)
  - Myocardial ischaemia [Recovered/Resolved]
  - Cholelithiasis [Recovered/Resolved]
